FAERS Safety Report 9308210 (Version 1)
Quarter: 2013Q2

REPORT INFORMATION
  Report Type: Spontaneous
  Country: US (occurrence: US)
  Receive Date: 20130523
  Receipt Date: 20130523
  Transmission Date: 20140414
  Serious: Yes (Other)
  Sender: FDA-Public Use
  Company Number: US-RB-053999-13

PATIENT
  Age: 0 None
  Sex: Female

DRUGS (4)
  1. SUBOXONE TABLET [Suspect]
     Indication: DRUG DEPENDENCE
     Route: 064
     Dates: start: 201105, end: 20120211
  2. SUBOXONE TABLET [Suspect]
     Route: 063
     Dates: start: 20120211, end: 201210
  3. NICOTINE [Suspect]
     Dosage: 4 CIGARETTES DAILY
     Route: 064
     Dates: start: 201105, end: 20120211
  4. NICOTINE [Suspect]
     Indication: NICOTINE DEPENDENCE
     Dosage: 4 CIGARETTES DAILY
     Route: 063
     Dates: start: 20120211, end: 201210

REACTIONS (4)
  - Low birth weight baby [Recovered/Resolved]
  - Body temperature decreased [Recovered/Resolved]
  - Foetal exposure during pregnancy [Recovered/Resolved]
  - Exposure during breast feeding [Recovered/Resolved]
